FAERS Safety Report 7135079-X (Version None)
Quarter: 2010Q4

REPORT INFORMATION
  Report Type: 
  Country: None (occurrence: None)
  Receive Date: 20101203
  Receipt Date: 20101123
  Transmission Date: 20110411
  Serious: Yes (Other)
  Sender: FDA-Public Use
  Company Number: CA-JNJFOC-20100308147

PATIENT
  Sex: Male
  Weight: 73 kg

DRUGS (7)
  1. REMICADE [Suspect]
     Indication: CROHN'S DISEASE
     Dosage: WEEK 6
     Route: 042
  2. REMICADE [Suspect]
     Dosage: WEEK 2
     Route: 042
  3. REMICADE [Suspect]
     Route: 042
  4. REMICADE [Suspect]
     Dosage: WEEK 0
     Route: 042
  5. IMURAN [Concomitant]
  6. TYLENOL-500 [Concomitant]
     Indication: PREMEDICATION
     Route: 048
  7. SOLU-CORTEF [Concomitant]
     Indication: PREMEDICATION
     Route: 042

REACTIONS (4)
  - DRUG INEFFECTIVE [None]
  - ERECTILE DYSFUNCTION [None]
  - LIBIDO DECREASED [None]
  - WEIGHT INCREASED [None]
